FAERS Safety Report 24362725 (Version 2)
Quarter: 2024Q4

REPORT INFORMATION
  Report Type: Spontaneous
  Country: US (occurrence: US)
  Receive Date: 20240925
  Receipt Date: 20241028
  Transmission Date: 20250115
  Serious: No
  Sender: PFIZER
  Company Number: US-PFIZER INC-202400260785

PATIENT
  Age: 5 Year
  Sex: Male

DRUGS (1)
  1. GENOTROPIN [Suspect]
     Active Substance: SOMATROPIN
     Dosage: 0.4 MG, DAILY

REACTIONS (1)
  - Muscle spasms [Unknown]
